FAERS Safety Report 7267973-3 (Version None)
Quarter: 2011Q1

REPORT INFORMATION
  Report Type: 
  Country: None (occurrence: None)
  Receive Date: 20110201
  Receipt Date: 20110124
  Transmission Date: 20110831
  Serious: Yes (Other)
  Sender: FDA-Public Use
  Company Number: US-ASTRAZENECA-2011SE00152

PATIENT
  Age: 56 Year
  Sex: Female

DRUGS (2)
  1. NEXIUM [Suspect]
     Route: 048
  2. TOPROL-XL [Suspect]
     Route: 048

REACTIONS (4)
  - HEART RATE INCREASED [None]
  - MYOCARDIAL INFARCTION [None]
  - DYSPNOEA [None]
  - TOOTH INFECTION [None]
